FAERS Safety Report 7539905-1 (Version None)
Quarter: 2011Q2

REPORT INFORMATION
  Report Type: 
  Country: None (occurrence: None)
  Receive Date: 20110610
  Receipt Date: 20110527
  Transmission Date: 20111010
  Serious: Yes (Hospitalization, Other)
  Sender: FDA-Public Use
  Company Number: US-BAYER-2011-033974

PATIENT
  Age: 27 Year
  Sex: Female
  Weight: 113.38 kg

DRUGS (3)
  1. YAZ [Suspect]
     Indication: ACNE
  2. YAZ [Suspect]
     Indication: CONTRACEPTION
     Dosage: UNK
     Dates: start: 20061101, end: 20090901
  3. HYDROXYZINE [Concomitant]
     Dosage: 50 MG, UNK
     Route: 048
     Dates: start: 20070804

REACTIONS (5)
  - ABDOMINAL PAIN [None]
  - JAUNDICE [None]
  - INJURY [None]
  - PAIN [None]
  - CHOLELITHIASIS [None]
